FAERS Safety Report 7119848-8 (Version None)
Quarter: 2010Q4

REPORT INFORMATION
  Report Type: 
  Country: None (occurrence: None)
  Receive Date: 20101123
  Receipt Date: 20100909
  Transmission Date: 20110411
  Serious: No
  Sender: FDA-Public Use
  Company Number: US-BRISTOL-MYERS SQUIBB COMPANY-15279482

PATIENT
  Age: 78 Year
  Sex: Male

DRUGS (5)
  1. ONGLYZA [Suspect]
     Dosage: FOR A PERIOD OF 2WKS
  2. GLYBURIDE [Concomitant]
  3. FUROSEMIDE [Concomitant]
  4. LIPITOR [Concomitant]
     Dosage: LIPITOR 20MG M,W,F
  5. LISINOPRIL [Concomitant]

REACTIONS (1)
  - WEIGHT INCREASED [None]
